FAERS Safety Report 21712409 (Version 1)
Quarter: 2022Q4

REPORT INFORMATION
  Report Type: Spontaneous
  Country: US (occurrence: None)
  Receive Date: 20221208
  Receipt Date: 20221208
  Transmission Date: 20230113
  Serious: No
  Sender: FDA-Public Use
  Company Number: None

PATIENT
  Age: 61 Year
  Sex: Female
  Weight: 83.46 kg

DRUGS (2)
  1. CARVEDILOL [Suspect]
     Active Substance: CARVEDILOL
     Indication: Hypertension
     Dosage: 40 QD ORAL
     Route: 048
     Dates: start: 2014
  2. CARVEDILOL [Suspect]
     Active Substance: CARVEDILOL
     Indication: Coronary artery disease

REACTIONS (2)
  - Product substitution issue [None]
  - Drug intolerance [None]

NARRATIVE: CASE EVENT DATE: 20220812
